FAERS Safety Report 8949584 (Version 1)
Quarter: 2012Q4

REPORT INFORMATION
  Report Type: Report from Study
  Country: CZ (occurrence: CZ)
  Receive Date: 20121206
  Receipt Date: 20121206
  Transmission Date: 20130627
  Serious: Yes (Hospitalization, Other)
  Sender: FDA-Public Use
  Company Number: PHHO2012CZ004196

PATIENT
  Age: 60 Year
  Sex: Male
  Weight: 70 kg

DRUGS (2)
  1. AMN107 [Suspect]
     Indication: GASTROINTESTINAL STROMAL TUMOUR
     Dosage: 800 mg, daily
     Route: 048
     Dates: start: 20100810, end: 20111228
  2. AMN107 [Suspect]
     Dosage: 800 mg, daily
     Route: 048

REACTIONS (3)
  - Concomitant disease progression [Recovered/Resolved]
  - Anaemia [Recovered/Resolved with Sequelae]
  - Angina pectoris [Unknown]
